FAERS Safety Report 4658760-0 (Version None)
Quarter: 2005Q2

REPORT INFORMATION
  Report Type: 
  Country: None (occurrence: None)
  Receive Date: 20050509
  Receipt Date: 20050426
  Transmission Date: 20051028
  Serious: Yes (Death, Other)
  Sender: FDA-Public Use
  Company Number: 05H-028-0298792-00

PATIENT
  Age: 78 Year
  Sex: Male

DRUGS (7)
  1. ATROPINE SULFATE [Suspect]
     Indication: LUNG DISORDER
     Dosage: 0.6 MG, EVERY 4 HOURS, SUBCUTANEOUS
     Route: 058
     Dates: start: 20040712, end: 20040701
  2. HYDROMORPHONE HCL [Suspect]
     Indication: LUNG DISORDER
     Dosage: 0.5 MG, PER HOUR, SUBCUTANEOUS
     Route: 058
     Dates: start: 20040712, end: 20040714
  3. HYDROMORPHONE HCL [Suspect]
     Indication: LUNG DISORDER
     Dosage: 0.5 MG, PER HOUR, SUBCUTANEOUS
     Route: 058
     Dates: start: 20040414, end: 20040715
  4. HYDROMORPHONE HCL [Concomitant]
  5. METOCLOPRAMIDE [Concomitant]
  6. SALBUTAMOL [Concomitant]
  7. LORAZEPAM [Suspect]
     Dosage: 1 MG, ONCE, SUBCUTANEOUS; 19:00; 19:30
     Route: 058
     Dates: start: 20040715, end: 20040715

REACTIONS (3)
  - DRUG LEVEL ABOVE THERAPEUTIC [None]
  - MIOSIS [None]
  - SHOCK [None]
